FAERS Safety Report 7523615-0 (Version None)
Quarter: 2011Q2

REPORT INFORMATION
  Report Type: 
  Country: None (occurrence: None)
  Receive Date: 20110603
  Receipt Date: 20110521
  Transmission Date: 20111010
  Serious: Yes (Other)
  Sender: FDA-Public Use
  Company Number: CA-JNJFOC-20110511493

PATIENT
  Sex: Female

DRUGS (5)
  1. REMICADE [Suspect]
     Route: 042
     Dates: start: 20110521
  2. REMICADE [Suspect]
     Dosage: SECOND INFUSION
     Route: 042
  3. REMICADE [Suspect]
     Route: 042
     Dates: start: 20110328
  4. REMICADE [Suspect]
     Indication: CROHN'S DISEASE
     Dosage: APPROXIMATELY 2 YEARS AGO
     Route: 042
  5. HUMIRA [Suspect]
     Indication: CROHN'S DISEASE

REACTIONS (12)
  - ANAL FISTULA [None]
  - RECTAL STENOSIS [None]
  - FLUSHING [None]
  - OEDEMA PERIPHERAL [None]
  - RECTAL FISSURE [None]
  - PRURITUS [None]
  - DYSPNOEA [None]
  - FATIGUE [None]
  - SKIN TIGHTNESS [None]
  - INFUSION RELATED REACTION [None]
  - RASH [None]
  - EAR DISORDER [None]
